FAERS Safety Report 10416010 (Version 1)
Quarter: 2014Q3

REPORT INFORMATION
  Report Type: Spontaneous
  Country: US (occurrence: US)
  Receive Date: 20140828
  Receipt Date: 20140828
  Transmission Date: 20150326
  Serious: No
  Sender: FDA-Public Use
  Company Number: US-009507513-1408USA012782

PATIENT
  Sex: Female

DRUGS (1)
  1. GRASTEK [Suspect]
     Active Substance: PHLEUM PRATENSE POLLEN
     Indication: ANTIALLERGIC THERAPY
     Dosage: 1 TABLET/ ONCE DAILY
     Route: 060
     Dates: start: 20140818, end: 20140818

REACTIONS (2)
  - Lip swelling [Recovered/Resolved]
  - Chest discomfort [Recovered/Resolved]

NARRATIVE: CASE EVENT DATE: 20140818
